FAERS Safety Report 6674355-1 (Version None)
Quarter: 2010Q2

REPORT INFORMATION
  Report Type: 
  Country: None (occurrence: None)
  Receive Date: 20100409
  Receipt Date: 20100329
  Transmission Date: 20101027
  Serious: Yes (Other)
  Sender: FDA-Public Use
  Company Number: US-MYLANLABS-2010S1005391

PATIENT
  Age: 24 None
  Sex: Male

DRUGS (2)
  1. AMNESTEEM [Suspect]
     Indication: ACNE
     Dates: start: 20100101
  2. AMNESTEEM [Suspect]
     Dates: end: 20100301

REACTIONS (1)
  - TESTIS CANCER [None]
